FAERS Safety Report 5607862-0 (Version None)
Quarter: 2008Q1

REPORT INFORMATION
  Report Type: 
  Country: None (occurrence: None)
  Receive Date: 20080130
  Receipt Date: 20071129
  Transmission Date: 20080703
  Serious: Yes (Other)
  Sender: FDA-Public Use
  Company Number: FR-BAYER-200717560GPV

PATIENT
  Age: 59 Year
  Sex: Male

DRUGS (3)
  1. SORAFENIB [Suspect]
     Indication: METASTATIC RENAL CELL CARCINOMA
  2. SUNITINIB [Suspect]
     Indication: METASTATIC RENAL CELL CARCINOMA
  3. BEVACIZUMAB [Concomitant]
     Indication: METASTATIC RENAL CELL CARCINOMA
     Route: 065

REACTIONS (5)
  - ASTHENIA [None]
  - ERYTHEMA MULTIFORME [None]
  - ORAL MUCOSA EROSION [None]
  - PYREXIA [None]
  - RASH [None]
